FAERS Safety Report 8850445 (Version 1)
Quarter: 2012Q4

REPORT INFORMATION
  Report Type: 
  Country: FR (occurrence: FR)
  Receive Date: 20121019
  Receipt Date: 20121019
  Transmission Date: 20130627
  Serious: Yes (Death, Life-Threatening, Hospitalization)
  Sender: FDA-Public Use
  Company Number: FR-MYLANLABS-2012S1021313

PATIENT
  Age: 57 Year
  Sex: Female

DRUGS (1)
  1. AMITRIPTYLINE [Suspect]
     Route: 042

REACTIONS (4)
  - Abdominal compartment syndrome [Fatal]
  - Multi-organ failure [Fatal]
  - Hypothermia [Unknown]
  - Megacolon [Fatal]
